FAERS Safety Report 7407906-X (Version None)
Quarter: 2011Q2

REPORT INFORMATION
  Report Type: 
  Country: None (occurrence: None)
  Receive Date: 20110412
  Receipt Date: 20110407
  Transmission Date: 20111010
  Serious: No
  Sender: FDA-Public Use
  Company Number: US-PFIZER INC-2011077225

PATIENT
  Sex: Female
  Weight: 49 kg

DRUGS (12)
  1. PREMARIN [Suspect]
     Indication: VULVOVAGINAL DRYNESS
     Dosage: 1 MG, BEDTIME
     Route: 067
     Dates: start: 20100101, end: 20110224
  2. ESTROGENS CONJUGATED [Suspect]
     Indication: VULVOVAGINAL DRYNESS
     Dosage: 0.3 MG, 1X/DAY
     Route: 048
     Dates: start: 20110224
  3. NEXIUM [Concomitant]
     Dosage: UNK
     Route: 048
  4. EVISTA [Concomitant]
     Dosage: UNK
     Route: 048
  5. XANAX [Concomitant]
     Dosage: UNK
     Route: 048
  6. PREVACID [Concomitant]
     Dosage: UNK
     Route: 048
  7. SEROQUEL [Concomitant]
     Dosage: UNK
     Route: 048
  8. LOVAZA [Concomitant]
     Dosage: UNK
     Route: 048
  9. ADEFOVIR DIPIVOXIL [Concomitant]
     Dosage: UNK
     Route: 048
  10. LITHIUM [Concomitant]
     Dosage: UNK
     Route: 048
  11. ASCORBIC ACID [Concomitant]
     Dosage: UNK
     Route: 048
  12. CALCIUM [Concomitant]
     Dosage: UNK
     Route: 048

REACTIONS (1)
  - DRY EYE [None]
